FAERS Safety Report 11409372 (Version 1)
Quarter: 2015Q3

REPORT INFORMATION
  Report Type: Report from Study
  Country: US (occurrence: US)
  Receive Date: 20150824
  Receipt Date: 20150824
  Transmission Date: 20151125
  Serious: No
  Sender: FDA-Public Use
  Company Number: PHEH2015US015714

PATIENT
  Age: 60 Year
  Sex: Female
  Weight: 117.9 kg

DRUGS (2)
  1. COSENTYX [Suspect]
     Active Substance: SECUKINUMAB
     Dosage: 150 MG/ML, QMO
     Route: 042
     Dates: start: 20150604
  2. COSENTYX [Suspect]
     Active Substance: SECUKINUMAB
     Indication: PSORIASIS
     Dosage: UNK
     Route: 065

REACTIONS (8)
  - Arthritis [Not Recovered/Not Resolved]
  - Weight increased [Recovering/Resolving]
  - Skin exfoliation [Not Recovered/Not Resolved]
  - Rash macular [Not Recovered/Not Resolved]
  - Increased appetite [Recovering/Resolving]
  - Maternal exposure during pregnancy [Unknown]
  - Incorrect route of drug administration [Unknown]
  - Psoriasis [Not Recovered/Not Resolved]

NARRATIVE: CASE EVENT DATE: 20150606
